FAERS Safety Report 8392290 (Version 4)
Quarter: 2015Q3

REPORT INFORMATION
  Report Type: Spontaneous
  Country: GB (occurrence: GB)
  Receive Date: 20120206
  Receipt Date: 20150818
  Transmission Date: 20151125
  Serious: Yes (Hospitalization, Other)
  Sender: FDA-Public Use
  Company Number: PHFR2012GB000853

PATIENT
  Age: 47 Year
  Sex: Male
  Weight: 58 kg

DRUGS (2)
  1. CLOZARIL [Suspect]
     Active Substance: CLOZAPINE
     Indication: SCHIZOPHRENIA
     Dosage: 700 OT, UNK
     Route: 048
     Dates: start: 20110822, end: 20120220
  2. CLOZARIL [Suspect]
     Active Substance: CLOZAPINE
     Dosage: UNK
     Route: 048
     Dates: start: 20140115

REACTIONS (8)
  - Dizziness [Recovering/Resolving]
  - Orthostatic hypotension [Unknown]
  - Decreased appetite [Recovering/Resolving]
  - Pallor [Recovered/Resolved]
  - Circulatory collapse [Recovered/Resolved]
  - Gastric haemorrhage [Unknown]
  - Impaired gastric emptying [Recovering/Resolving]
  - Tachycardia [Unknown]

NARRATIVE: CASE EVENT DATE: 201201
